FAERS Safety Report 8416421-6 (Version None)
Quarter: 2012Q2

REPORT INFORMATION
  Report Type: 
  Country: None (occurrence: None)
  Receive Date: 20120606
  Receipt Date: 20120523
  Transmission Date: 20120825
  Serious: Yes (Hospitalization)
  Sender: FDA-Public Use
  Company Number: US-VIROPHARMA INCORPORATED-20120523CINRY2987

PATIENT
  Sex: Female
  Weight: 138.47 kg

DRUGS (1)
  1. CINRYZE [Suspect]
     Indication: HEREDITARY ANGIOEDEMA

REACTIONS (6)
  - FALL [None]
  - HEREDITARY ANGIOEDEMA [None]
  - ANGIOEDEMA [None]
  - INAPPROPRIATE SCHEDULE OF DRUG ADMINISTRATION [None]
  - SEPSIS [None]
  - THERAPY REGIMEN CHANGED [None]
